FAERS Safety Report 20140944 (Version 2)
Quarter: 2022Q4

REPORT INFORMATION
  Report Type: Spontaneous
  Country: US (occurrence: US)
  Receive Date: 20211202
  Receipt Date: 20221026
  Transmission Date: 20230113
  Serious: No
  Sender: FDA-Public Use
  Company Number: US-ALLERGAN-2131855US

PATIENT
  Age: 40 Year
  Sex: Female

DRUGS (2)
  1. INFED [Suspect]
     Active Substance: IRON DEXTRAN
     Indication: Iron deficiency anaemia
     Dosage: TEST DOSE 25 MG GIVEN SLOW IVP
     Route: 042
     Dates: start: 20210811, end: 20210811
  2. SODIUM CHLORIDE [Concomitant]
     Active Substance: SODIUM CHLORIDE
     Dosage: UNK
     Route: 042
     Dates: start: 20210811, end: 20210811

REACTIONS (4)
  - Throat tightness [Recovered/Resolved]
  - Wrong technique in product usage process [Unknown]
  - Product preparation error [Unknown]
  - Drug hypersensitivity [Recovered/Resolved]

NARRATIVE: CASE EVENT DATE: 20210811
